FAERS Safety Report 21904042 (Version 2)
Quarter: 2023Q2

REPORT INFORMATION
  Report Type: Spontaneous
  Country: JP (occurrence: JP)
  Receive Date: 20230124
  Receipt Date: 20230502
  Transmission Date: 20230722
  Serious: Yes (Other)
  Sender: FDA-Public Use
  Company Number: JP-PFIZER INC-PV202300012416

PATIENT
  Age: 55 Year
  Sex: Female
  Weight: 43.4 kg

DRUGS (4)
  1. PACLITAXEL [Suspect]
     Active Substance: PACLITAXEL
     Indication: Ovarian cancer
     Dosage: 230 MG (DOSE OF DAY), ONCE
     Route: 041
     Dates: start: 20221111, end: 20221111
  2. LOXOPROFEN SODIUM [Concomitant]
     Active Substance: LOXOPROFEN SODIUM
     Indication: Analgesic therapy
     Dosage: 60 MG, AS NEEDED
     Route: 048
     Dates: start: 20221025
  3. SODIUM PICOSULFATE [Concomitant]
     Active Substance: SODIUM PICOSULFATE
     Indication: Constipation
     Dosage: 15 DROP, AS NEEDED
     Route: 048
     Dates: start: 20221027
  4. CALONAL [Concomitant]
     Active Substance: ACETAMINOPHEN
     Indication: Analgesic therapy
     Dosage: 500 MG, AS NEEDED
     Route: 048
     Dates: start: 20221027

REACTIONS (5)
  - Hypersensitivity [Recovered/Resolved]
  - Nausea [Recovering/Resolving]
  - Back pain [Not Recovered/Not Resolved]
  - Hypoaesthesia [Recovering/Resolving]
  - Cold sweat [Recovering/Resolving]

NARRATIVE: CASE EVENT DATE: 20221111
